FAERS Safety Report 6709422-7 (Version None)
Quarter: 2010Q2

REPORT INFORMATION
  Report Type: 
  Country: None (occurrence: None)
  Receive Date: 20100504
  Receipt Date: 20100430
  Transmission Date: 20101027
  Serious: Yes (Death)
  Sender: FDA-Public Use
  Company Number: BR-ASTRAZENECA-2010SE19698

PATIENT
  Age: 39 Year
  Sex: Male

DRUGS (1)
  1. SEROQUEL [Suspect]
     Indication: ALCOHOLISM
     Route: 048
     Dates: start: 20100301

REACTIONS (1)
  - MYOCARDIAL INFARCTION [None]
